FAERS Safety Report 4761785-8 (Version None)
Quarter: 2005Q3

REPORT INFORMATION
  Report Type: 
  Country: None (occurrence: None)
  Receive Date: 20050906
  Receipt Date: 20050827
  Transmission Date: 20060218
  Serious: Yes (Other)
  Sender: FDA-Public Use
  Company Number: GB-GLAXOSMITHKLINE-B0392350A

PATIENT
  Age: 60 Year
  Sex: Female

DRUGS (3)
  1. NIQUITIN CQ [Suspect]
     Route: 048
  2. VENLAFAXINE [Concomitant]
     Indication: DEPRESSION
     Dates: start: 20040101
  3. MIRTAZAPINE [Concomitant]
     Indication: DEPRESSION

REACTIONS (2)
  - DEPRESSION [None]
  - NIGHTMARE [None]
